FAERS Safety Report 5782524-8 (Version None)
Quarter: 2008Q2

REPORT INFORMATION
  Report Type: 
  Country: None (occurrence: None)
  Receive Date: 20080623
  Receipt Date: 20080613
  Transmission Date: 20081010
  Serious: Yes (Other)
  Sender: FDA-Public Use
  Company Number: HQWYE038215APR05

PATIENT
  Sex: Female
  Weight: 71.73 kg

DRUGS (4)
  1. PREMARIN [Suspect]
     Dosage: UNKNOWN
     Dates: start: 19900101
  2. CLIMARA [Suspect]
  3. PROMETRIUM [Suspect]
  4. PROVERA [Suspect]
     Dosage: UNKNOWN
     Dates: start: 19900101

REACTIONS (2)
  - BREAST CANCER METASTATIC [None]
  - HAEMATOMA [None]
